FAERS Safety Report 8827082 (Version 2)
Quarter: 2012Q4

REPORT INFORMATION
  Report Type: 
  Country: US (occurrence: US)
  Receive Date: 20121005
  Receipt Date: 20121025
  Transmission Date: 20130627
  Serious: Yes (Hospitalization)
  Sender: FDA-Public Use
  Company Number: US-JNJFOC-20121000382

PATIENT
  Age: 77 Year
  Sex: Female
  Weight: 64.86 kg

DRUGS (11)
  1. XARELTO [Suspect]
     Indication: CEREBROVASCULAR ACCIDENT PROPHYLAXIS
     Route: 048
     Dates: start: 20120822, end: 20120918
  2. XARELTO [Suspect]
     Indication: ATRIAL FIBRILLATION
     Route: 048
     Dates: start: 20120822, end: 20120918
  3. COUMADIN [Suspect]
     Indication: PRODUCT USED FOR UNKNOWN INDICATION
     Dates: end: 20120822
  4. COUMADIN [Suspect]
     Indication: PRODUCT USED FOR UNKNOWN INDICATION
  5. LIPITOR [Concomitant]
  6. ERGOCALCIFEROL [Concomitant]
  7. HYDROCHLOROTHIAZIDE [Concomitant]
  8. AMIODARONE [Concomitant]
  9. KLOR-CON [Concomitant]
     Dates: end: 20120922
  10. DIOVAN [Concomitant]
  11. FLEXERIL [Concomitant]
     Dates: start: 20120822

REACTIONS (2)
  - Gingival bleeding [Recovered/Resolved]
  - International normalised ratio increased [Recovered/Resolved]
